FAERS Safety Report 16217656 (Version 5)
Quarter: 2019Q2

REPORT INFORMATION
  Report Type: Spontaneous
  Country: JP (occurrence: JP)
  Receive Date: 20190419
  Receipt Date: 20190530
  Transmission Date: 20190711
  Serious: Yes (Death, Hospitalization, Other)
  Sender: FDA-Public Use
  Company Number: JP-ELI_LILLY_AND_COMPANY-JP201904006335

PATIENT
  Age: 51 Year
  Sex: Female

DRUGS (3)
  1. RANMARK [Concomitant]
     Active Substance: DENOSUMAB
     Indication: BREAST CANCER RECURRENT
     Dosage: UNK
     Dates: start: 201810, end: 201904
  2. FASLODEX [Concomitant]
     Active Substance: FULVESTRANT
     Indication: BREAST CANCER RECURRENT
     Route: 030
  3. VERZENIO [Suspect]
     Active Substance: ABEMACICLIB
     Indication: BREAST CANCER RECURRENT
     Dosage: 100 MG, BID
     Route: 048
     Dates: start: 20181219, end: 20190327

REACTIONS (6)
  - Device related infection [Unknown]
  - Pulmonary embolism [Unknown]
  - C-reactive protein increased [Unknown]
  - Deep vein thrombosis [Recovered/Resolved]
  - Interstitial lung disease [Fatal]
  - Palpitations [Unknown]

NARRATIVE: CASE EVENT DATE: 20190326
